FAERS Safety Report 20819621 (Version 1)
Quarter: 2022Q2

REPORT INFORMATION
  Report Type: Spontaneous
  Country: DE (occurrence: DE)
  Receive Date: 20220512
  Receipt Date: 20220512
  Transmission Date: 20220720
  Serious: Yes (Other)
  Sender: FDA-Public Use
  Company Number: DE-PFIZER INC-202200654654

PATIENT
  Age: 5 Decade
  Sex: Female

DRUGS (1)
  1. TREVILOR RETARD [Suspect]
     Active Substance: VENLAFAXINE HYDROCHLORIDE
     Dosage: 37.5 MG

REACTIONS (8)
  - Drug dependence [Unknown]
  - Brain scan abnormal [Unknown]
  - Facial pain [Unknown]
  - Toothache [Unknown]
  - Medical device pain [Unknown]
  - Insomnia [Unknown]
  - Withdrawal syndrome [Unknown]
  - Wrong technique in product usage process [Unknown]
